FAERS Safety Report 5219618-1 (Version None)
Quarter: 2007Q1

REPORT INFORMATION
  Report Type: 
  Country: None (occurrence: None)
  Receive Date: 20070125
  Receipt Date: 20070111
  Transmission Date: 20070707
  Serious: Yes (Other)
  Sender: FDA-Public Use
  Company Number: US-SHR-US-2007-000929

PATIENT
  Age: 45 Year
  Sex: Female

DRUGS (1)
  1. BETASERON [Suspect]
     Route: 058
     Dates: start: 20030101

REACTIONS (3)
  - AMNESIA [None]
  - GRAND MAL CONVULSION [None]
  - INCONTINENCE [None]
